FAERS Safety Report 23707363 (Version 1)
Quarter: 2024Q2

REPORT INFORMATION
  Report Type: Spontaneous
  Country: US (occurrence: None)
  Receive Date: 20240404
  Receipt Date: 20240404
  Transmission Date: 20240716
  Serious: No
  Sender: FDA-Public Use
  Company Number: None

PATIENT
  Sex: Male
  Weight: 130 kg

DRUGS (1)
  1. CISPLATIN [Suspect]
     Active Substance: CISPLATIN
     Dosage: 714 MG
     Dates: end: 20240318

REACTIONS (3)
  - Musculoskeletal chest pain [None]
  - Peripheral swelling [None]
  - Pulmonary embolism [None]

NARRATIVE: CASE EVENT DATE: 20240326
